FAERS Safety Report 8886773 (Version 1)
Quarter: 2012Q4

REPORT INFORMATION
  Report Type: 
  Country: CA (occurrence: CA)
  Receive Date: 20121105
  Receipt Date: 20121105
  Transmission Date: 20130627
  Serious: Yes (Death, Other)
  Sender: FDA-Public Use
  Company Number: CA-PFIZER INC-2012265497

PATIENT
  Age: 70 Year
  Sex: Female

DRUGS (8)
  1. CELEBREX [Suspect]
     Dosage: 200 mg, 1 caplet,
     Dates: start: 1999
  2. CELEBREX [Suspect]
     Dosage: 200 mg,
     Dates: start: 200106, end: 200110
  3. CELEBREX [Suspect]
     Dosage: 200 mg,
     Dates: start: 200203, end: 200203
  4. CELEBREX [Suspect]
     Dosage: UNK
     Dates: end: 2003
  5. GLUCOPHAGE [Concomitant]
     Indication: TYPE 2 DIABETES MELLITUS
     Dosage: 500 mg, 3x/day
  6. ATENOLOL [Concomitant]
     Dosage: UNK
  7. HYDRAZIDE [Concomitant]
     Dosage: UNK
  8. COUMADIN ^BOOTS^ [Concomitant]
     Dosage: UNK

REACTIONS (1)
  - Pulmonary embolism [Fatal]
